FAERS Safety Report 16833753 (Version 4)
Quarter: 2020Q4

REPORT INFORMATION
  Report Type: Spontaneous
  Country: US (occurrence: US)
  Receive Date: 20190920
  Receipt Date: 20201124
  Transmission Date: 20210113
  Serious: No
  Sender: FDA-Public Use
  Company Number: US-PFIZER INC-2019120660

PATIENT
  Age: 70 Year
  Sex: Female
  Weight: 68.04 kg

DRUGS (4)
  1. LYRICA [Suspect]
     Active Substance: PREGABALIN
     Dosage: 75 MG, DAILY [TAKE 1 CAPSULE BY MOUTH EVERY DAY AS DIRECTED]
     Route: 048
  2. LYRICA [Suspect]
     Active Substance: PREGABALIN
     Indication: NEUROPATHY PERIPHERAL
     Dosage: 75 MG FIVE TIMES A DAY
     Route: 048
  3. LYRICA [Suspect]
     Active Substance: PREGABALIN
     Indication: POLYNEUROPATHY
     Dosage: 100 MG, 1X/DAY
     Route: 048
  4. LYRICA [Suspect]
     Active Substance: PREGABALIN
     Dosage: 100 MG, 3X/DAY (TAKE I CAPSULE BY MOUTH 3 TIMES A DAY AS DIRECTED BY PHYSICIAN. 30)
     Route: 048

REACTIONS (2)
  - Memory impairment [Unknown]
  - Intentional product misuse [Unknown]
